FAERS Safety Report 10455450 (Version 1)
Quarter: 2014Q3

REPORT INFORMATION
  Report Type: Spontaneous
  Country: US (occurrence: None)
  Receive Date: 20140915
  Receipt Date: 20140915
  Transmission Date: 20150326
  Serious: No
  Sender: FDA-Public Use
  Company Number: None

PATIENT
  Age: 73 Year
  Sex: Female
  Weight: 64.41 kg

DRUGS (2)
  1. SYMBICORT [Suspect]
     Active Substance: BUDESONIDE\FORMOTEROL FUMARATE DIHYDRATE
     Indication: ASTHMA
     Dosage: INHALE 2 PUFFS TWICE DAILY INHALATION
     Route: 055
     Dates: start: 20140911, end: 20140913
  2. SYMBICORT [Suspect]
     Active Substance: BUDESONIDE\FORMOTEROL FUMARATE DIHYDRATE
     Indication: BRONCHITIS
     Dosage: INHALE 2 PUFFS TWICE DAILY INHALATION
     Route: 055
     Dates: start: 20140911, end: 20140913

REACTIONS (1)
  - Dysphagia [None]

NARRATIVE: CASE EVENT DATE: 20140913
